FAERS Safety Report 22240234 (Version 2)
Quarter: 2023Q2

REPORT INFORMATION
  Report Type: Spontaneous
  Country: US (occurrence: US)
  Receive Date: 20230421
  Receipt Date: 20230612
  Transmission Date: 20230721
  Serious: Yes (Other)
  Sender: FDA-Public Use
  Company Number: US-PFIZER INC-202300161785

PATIENT
  Sex: Male

DRUGS (1)
  1. THROMBIN [Suspect]
     Active Substance: THROMBIN
     Dosage: UNK
     Dates: start: 2021

REACTIONS (4)
  - Neoplasm malignant [Unknown]
  - Vascular pseudoaneurysm [Unknown]
  - Neoplasm [Unknown]
  - Groin pain [Unknown]

NARRATIVE: CASE EVENT DATE: 20210101
